FAERS Safety Report 21095527 (Version 10)
Quarter: 2023Q1

REPORT INFORMATION
  Report Type: Spontaneous
  Country: US (occurrence: US)
  Receive Date: 20220718
  Receipt Date: 20230329
  Transmission Date: 20230418
  Serious: No
  Sender: FDA-Public Use
  Company Number: US-PFIZER INC-202200766578

PATIENT
  Age: 79 Year
  Sex: Female
  Weight: 79.365 kg

DRUGS (3)
  1. IBRANCE [Suspect]
     Active Substance: PALBOCICLIB
     Indication: Breast cancer metastatic
     Dosage: IN MORNING WITH BREAKFAST ONCE A DAY
     Route: 048
     Dates: start: 20220521
  2. EXEMESTANE [Concomitant]
     Active Substance: EXEMESTANE
     Indication: Breast cancer female
     Dosage: 25 MG (TAKEN ALONG WITH IBRANCE IN THE MORNING)
     Dates: start: 20220717
  3. FULVESTRANT [Concomitant]
     Active Substance: FULVESTRANT
     Indication: Breast cancer female
     Dosage: UNK, MONTHLY
     Dates: start: 20220522

REACTIONS (11)
  - Pain [Recovered/Resolved]
  - Muscle strain [Recovered/Resolved]
  - Neuralgia [Recovered/Resolved]
  - Feeling abnormal [Recovered/Resolved]
  - Flatulence [Recovered/Resolved]
  - Breast pain [Recovered/Resolved]
  - Paraesthesia [Recovered/Resolved]
  - Alopecia [Not Recovered/Not Resolved]
  - Nausea [Unknown]
  - Fatigue [Unknown]
  - Hyperaesthesia [Unknown]

NARRATIVE: CASE EVENT DATE: 20220101
